FAERS Safety Report 10064133 (Version 2)
Quarter: 2014Q2

REPORT INFORMATION
  Report Type: Spontaneous
  Country: JP (occurrence: JP)
  Receive Date: 20140408
  Receipt Date: 20140410
  Transmission Date: 20141212
  Serious: Yes (Other)
  Sender: FDA-Public Use
  Company Number: JP-PFIZER INC-2014095929

PATIENT
  Age: 10 Decade
  Sex: Female

DRUGS (11)
  1. CELECOX [Suspect]
     Indication: BACK PAIN
     Dosage: 100 MG, DAILY
     Route: 048
     Dates: start: 20140322, end: 20140324
  2. MOHRUS [Concomitant]
     Indication: BACK PAIN
     Dosage: 40 MG, DAILY
     Dates: start: 20140323
  3. GASTER [Concomitant]
     Dosage: UNK
  4. ASTOMIN [Concomitant]
     Dosage: UNK
     Route: 048
  5. VITAMEDIN CAPSULE [Concomitant]
     Dosage: UNK
  6. NU LOTAN [Concomitant]
     Dosage: UNK
  7. LANIRAPID [Concomitant]
     Dosage: UNK
  8. MUCODYNE [Concomitant]
     Dosage: UNK
     Route: 048
  9. LEVOFLOXACIN [Concomitant]
     Dosage: UNK
  10. FEXOFENADINE [Concomitant]
     Dosage: UNK
     Route: 048
  11. PL COMBINATION GRANULES [Concomitant]
     Dosage: UNK

REACTIONS (2)
  - Skin erosion [Recovered/Resolved]
  - Intentional product misuse [Unknown]
